FAERS Safety Report 7661627-7 (Version None)
Quarter: 2011Q3

REPORT INFORMATION
  Report Type: 
  Country: None (occurrence: None)
  Receive Date: 20110805
  Receipt Date: 20101116
  Transmission Date: 20111222
  Serious: No
  Sender: FDA-Public Use
  Company Number: US-ABBOTT-10P-163-0685709-00

PATIENT
  Sex: Female
  Weight: 83.99 kg

DRUGS (3)
  1. ASPIRIN [Concomitant]
     Indication: PRODUCT USED FOR UNKNOWN INDICATION
     Dosage: 4 HOURS BEFORE NIASPAN
  2. NIASPAN [Suspect]
     Indication: DYSLIPIDAEMIA
     Dates: start: 20101112
  3. PROTONIX [Concomitant]
     Indication: PRODUCT USED FOR UNKNOWN INDICATION

REACTIONS (6)
  - ERYTHEMA [None]
  - BACK PAIN [None]
  - FEELING HOT [None]
  - FLUSHING [None]
  - PRURITUS [None]
  - PARAESTHESIA [None]
